FAERS Safety Report 18359372 (Version 1)
Quarter: 2020Q4

REPORT INFORMATION
  Report Type: Report from Study
  Country: CN (occurrence: CN)
  Receive Date: 20201008
  Receipt Date: 20201008
  Transmission Date: 20210114
  Serious: Yes (Death, Other)
  Sender: FDA-Public Use
  Company Number: CN-ACCORD-204459

PATIENT

DRUGS (2)
  1. ETOPOSIDE. [Suspect]
     Active Substance: ETOPOSIDE
     Indication: SMALL CELL LUNG CANCER LIMITED STAGE
     Dosage: DAYS 1-3
     Route: 042
  2. CISPLATIN. [Suspect]
     Active Substance: CISPLATIN
     Indication: SMALL CELL LUNG CANCER LIMITED STAGE
     Dosage: DAYS 1-3
     Route: 042

REACTIONS (2)
  - Pneumonia [Fatal]
  - Radiation pneumonitis [Fatal]
